FAERS Safety Report 5146047-1 (Version None)
Quarter: 2006Q4

REPORT INFORMATION
  Report Type: 
  Country: None (occurrence: None)
  Receive Date: 20061108
  Receipt Date: 20061107
  Transmission Date: 20070319
  Serious: Yes (Other)
  Sender: FDA-Public Use
  Company Number: US-GLAXOSMITHKLINE-A0626586A

PATIENT
  Sex: Female

DRUGS (1)
  1. COREG [Suspect]
     Indication: DRUG USE FOR UNKNOWN INDICATION
     Dosage: 12.5MG TWICE PER DAY
     Route: 065
     Dates: start: 20060601

REACTIONS (1)
  - ANGINA PECTORIS [None]
